FAERS Safety Report 14011349 (Version 2)
Quarter: 2017Q4

REPORT INFORMATION
  Report Type: Spontaneous
  Country: US (occurrence: US)
  Receive Date: 20170926
  Receipt Date: 20171121
  Transmission Date: 20180321
  Serious: Yes (Other)
  Sender: FDA-Public Use
  Company Number: US-ASTELLAS-2017US036462

PATIENT
  Age: 82 Year
  Sex: Male

DRUGS (1)
  1. XTANDI [Suspect]
     Active Substance: ENZALUTAMIDE
     Indication: PROSTATE CANCER
     Route: 048

REACTIONS (7)
  - Skin neoplasm excision [Unknown]
  - Fatigue [Unknown]
  - Drug dose omission [Unknown]
  - Nightmare [Unknown]
  - Asthenia [Recovered/Resolved]
  - Skin cancer [Unknown]
  - Dehydration [Unknown]

NARRATIVE: CASE EVENT DATE: 20170902
